FAERS Safety Report 8409502-4 (Version None)
Quarter: 2012Q2

REPORT INFORMATION
  Report Type: 
  Country: None (occurrence: None)
  Receive Date: 20120531
  Receipt Date: 20120531
  Transmission Date: 20120825
  Serious: No
  Sender: FDA-Public Use
  Company Number: None

PATIENT
  Sex: Female
  Weight: 73.6 kg

DRUGS (1)
  1. VIDAZA [Suspect]
     Indication: MYELODYSPLASTIC SYNDROME
     Dosage: 95 MG QD X 5 DAYS Q21 SUBCUTANEOUS
     Route: 058
     Dates: start: 20120409, end: 20120504

REACTIONS (3)
  - ERYTHEMA NODOSUM [None]
  - PYREXIA [None]
  - NODULE [None]
